FAERS Safety Report 13758265 (Version 1)
Quarter: 2017Q3

REPORT INFORMATION
  Report Type: Spontaneous
  Country: US (occurrence: US)
  Receive Date: 20170715
  Receipt Date: 20170715
  Transmission Date: 20171127
  Serious: Yes (Hospitalization)
  Sender: FDA-Public Use
  Company Number: None

PATIENT
  Age: 40 Year
  Sex: Female
  Weight: 58.5 kg

DRUGS (1)
  1. BENADRYL [Suspect]
     Active Substance: DIPHENHYDRAMINE HYDROCHLORIDE
     Indication: SEASONAL ALLERGY
     Dosage: ?          QUANTITY:1 CAPSULE(S);?
     Route: 048
     Dates: start: 20151120, end: 20151231

REACTIONS (12)
  - Palpitations [None]
  - Sedation [None]
  - Tremor [None]
  - Seizure [None]
  - Chest pain [None]
  - Dyskinesia [None]
  - Anxiety [None]
  - Neuritis [None]
  - Mutism [None]
  - Dizziness [None]
  - Cognitive disorder [None]
  - Dyspnoea [None]

NARRATIVE: CASE EVENT DATE: 20151201
